FAERS Safety Report 19498954 (Version 67)
Quarter: 2025Q4

REPORT INFORMATION
  Report Type: Spontaneous
  Country: GB (occurrence: None)
  Receive Date: 20210707
  Receipt Date: 20251120
  Transmission Date: 20260117
  Serious: Yes (Hospitalization, Other)
  Sender: ORION
  Company Number: GB-PFIZER INC-2019511224

PATIENT
  Age: 68 Year
  Sex: Female
  Weight: 92 kg

DRUGS (303)
  1. METHOTREXATE [Suspect]
     Active Substance: METHOTREXATE
     Indication: Rheumatoid arthritis
     Dosage: 17.5 MILLIGRAM, Q.W., UNK UNK, Q.W., WEEKLY, AT 17.5 (UNKNOWN UNIT)
     Dates: start: 20100917
  2. METHOTREXATE [Suspect]
     Active Substance: METHOTREXATE
     Indication: Abdominal discomfort
  3. METHOTREXATE [Suspect]
     Active Substance: METHOTREXATE
     Dosage: (AT 17.5, WEEKLY)
     Dates: start: 20100917
  4. METHOTREXATE [Suspect]
     Active Substance: METHOTREXATE
     Dosage: 17.5 MILLIGRAM, Q.W., UNK UNK, Q.W., WEEKLY, AT 17.5 (UNKNOWN UNIT)
     Dates: start: 20100917
  5. METHOTREXATE [Suspect]
     Active Substance: METHOTREXATE
     Dosage: (AT 17.5, WEEKLY)
     Dates: start: 20100917
  6. METHOTREXATE [Suspect]
     Active Substance: METHOTREXATE
  7. METHOTREXATE [Suspect]
     Active Substance: METHOTREXATE
  8. METHOTREXATE [Suspect]
     Active Substance: METHOTREXATE
  9. METHOTREXATE [Suspect]
     Active Substance: METHOTREXATE
     Dates: start: 20100917
  10. METHOTREXATE [Suspect]
     Active Substance: METHOTREXATE
     Dosage: 17.5 MILLIGRAM, Q.W., UNK UNK, Q.W., WEEKLY, AT 17.5 (UNKNOWN UNIT)
     Dates: start: 20100917
  11. METHOTREXATE [Suspect]
     Active Substance: METHOTREXATE
     Dates: start: 20100917
  12. METHOTREXATE [Suspect]
     Active Substance: METHOTREXATE
     Dosage: 18 MG, PER WEEK (UNKNOWN, WEEKLY, QW (AT 17.5, WEEKLY))
     Dates: start: 20100917
  13. METHOTREXATE [Suspect]
     Active Substance: METHOTREXATE
  14. METHOTREXATE [Suspect]
     Active Substance: METHOTREXATE
     Dates: start: 20100917
  15. METHOTREXATE [Suspect]
     Active Substance: METHOTREXATE
  16. ENBREL [Suspect]
     Active Substance: ETANERCEPT
     Indication: Rheumatoid arthritis
     Dosage: MYCLIC PENS
     Dates: start: 20100917
  17. ENBREL [Suspect]
     Active Substance: ETANERCEPT
     Dosage: MYCLIC PENS
     Dates: start: 20210917
  18. ENBREL [Suspect]
     Active Substance: ETANERCEPT
  19. ENBREL [Suspect]
     Active Substance: ETANERCEPT
     Dosage: MYCLIC PEN
  20. ENBREL [Suspect]
     Active Substance: ETANERCEPT
     Dosage: MYCLIC PENS
     Dates: start: 20100917
  21. ENBREL [Suspect]
     Active Substance: ETANERCEPT
     Dosage: MYCLIC PENS
     Dates: start: 20210917
  22. ENBREL [Suspect]
     Active Substance: ETANERCEPT
     Dosage: MYCLIC PEN
  23. ENBREL [Suspect]
     Active Substance: ETANERCEPT
     Dosage: MYCLIC PEN
  24. CIPROFLOXACIN [Suspect]
     Active Substance: CIPROFLOXACIN
     Indication: Abdominal discomfort
     Dates: start: 20100917
  25. CIPROFLOXACIN [Suspect]
     Active Substance: CIPROFLOXACIN
     Indication: Depression
     Dates: start: 20200917
  26. CIPROFLOXACIN [Suspect]
     Active Substance: CIPROFLOXACIN
     Indication: Rheumatoid arthritis
  27. CIPROFLOXACIN [Suspect]
     Active Substance: CIPROFLOXACIN
     Dates: start: 20200917
  28. CIPROFLOXACIN [Suspect]
     Active Substance: CIPROFLOXACIN
  29. CIPROFLOXACIN [Suspect]
     Active Substance: CIPROFLOXACIN
     Dates: start: 20100917
  30. CIPROFLOXACIN [Suspect]
     Active Substance: CIPROFLOXACIN
     Dates: start: 20100917
  31. CIPROFLOXACIN [Suspect]
     Active Substance: CIPROFLOXACIN
     Dosage: BATCH AND LOT TESTED AND FOUND WITHIN SPECIFICATIONS
     Dates: start: 20100917
  32. CIPROFLOXACIN [Suspect]
     Active Substance: CIPROFLOXACIN
  33. CIPROFLOXACIN [Suspect]
     Active Substance: CIPROFLOXACIN
     Dates: start: 20100917
  34. CIPROFLOXACIN [Suspect]
     Active Substance: CIPROFLOXACIN
     Dates: start: 20100917
  35. VENLAFAXINE HYDROCHLORIDE [Suspect]
     Active Substance: VENLAFAXINE HYDROCHLORIDE
     Indication: Rheumatoid arthritis
  36. VENLAFAXINE HYDROCHLORIDE [Suspect]
     Active Substance: VENLAFAXINE HYDROCHLORIDE
     Indication: Depression
  37. VENLAFAXINE HYDROCHLORIDE [Suspect]
     Active Substance: VENLAFAXINE HYDROCHLORIDE
  38. VENLAFAXINE HYDROCHLORIDE [Suspect]
     Active Substance: VENLAFAXINE HYDROCHLORIDE
  39. VENLAFAXINE HYDROCHLORIDE [Suspect]
     Active Substance: VENLAFAXINE HYDROCHLORIDE
  40. VENLAFAXINE HYDROCHLORIDE [Suspect]
     Active Substance: VENLAFAXINE HYDROCHLORIDE
  41. VENLAFAXINE HYDROCHLORIDE [Suspect]
     Active Substance: VENLAFAXINE HYDROCHLORIDE
     Dosage: 225 MG, DAILY, ONCE A DAY, PROLONGED RELEASE
  42. VENLAFAXINE HYDROCHLORIDE [Suspect]
     Active Substance: VENLAFAXINE HYDROCHLORIDE
  43. VENLAFAXINE HYDROCHLORIDE [Suspect]
     Active Substance: VENLAFAXINE HYDROCHLORIDE
  44. VENLAFAXINE HYDROCHLORIDE [Suspect]
     Active Substance: VENLAFAXINE HYDROCHLORIDE
  45. VENLAFAXINE HYDROCHLORIDE [Suspect]
     Active Substance: VENLAFAXINE HYDROCHLORIDE
  46. VENLAFAXINE HYDROCHLORIDE [Suspect]
     Active Substance: VENLAFAXINE HYDROCHLORIDE
  47. VENLAFAXINE HYDROCHLORIDE [Suspect]
     Active Substance: VENLAFAXINE HYDROCHLORIDE
  48. VENLAFAXINE HYDROCHLORIDE [Suspect]
     Active Substance: VENLAFAXINE HYDROCHLORIDE
  49. VENLAFAXINE HYDROCHLORIDE [Suspect]
     Active Substance: VENLAFAXINE HYDROCHLORIDE
  50. VENLAFAXINE HYDROCHLORIDE [Suspect]
     Active Substance: VENLAFAXINE HYDROCHLORIDE
  51. OMEPRAZOLE [Suspect]
     Active Substance: OMEPRAZOLE
     Indication: Abdominal discomfort
     Dosage: BATCH AND LOT TESTED AND FOUND WITHIN SPECIFICATIONS
     Dates: start: 20100917
  52. OMEPRAZOLE [Suspect]
     Active Substance: OMEPRAZOLE
     Indication: Gastrointestinal disorder
     Dates: start: 20100917
  53. OMEPRAZOLE [Suspect]
     Active Substance: OMEPRAZOLE
     Dosage: 20 MG, 2X/DAY FOR STOMACH
     Dates: start: 20100917
  54. OMEPRAZOLE [Suspect]
     Active Substance: OMEPRAZOLE
     Dates: start: 20200917
  55. OMEPRAZOLE [Suspect]
     Active Substance: OMEPRAZOLE
     Dosage: 480 MILLIGRAM DAILY; 20 MG, 2X/DAY
  56. OMEPRAZOLE [Suspect]
     Active Substance: OMEPRAZOLE
     Dosage: 480 MILLIGRAM DAILY; 20 MG, 2X/DAY
  57. OMEPRAZOLE [Suspect]
     Active Substance: OMEPRAZOLE
     Dosage: 20 MG, 4 TIMES PER DAY
     Dates: start: 20100917
  58. OMEPRAZOLE [Suspect]
     Active Substance: OMEPRAZOLE
     Dosage: 20 MG, 2X/DAY
     Dates: start: 20100917
  59. OMEPRAZOLE [Suspect]
     Active Substance: OMEPRAZOLE
     Dates: start: 20100917
  60. OMEPRAZOLE [Suspect]
     Active Substance: OMEPRAZOLE
     Dates: start: 20100917
  61. OMEPRAZOLE [Suspect]
     Active Substance: OMEPRAZOLE
     Dosage: 20 MG, 4 TIMES PER DAY
     Dates: start: 20100917
  62. OMEPRAZOLE [Suspect]
     Active Substance: OMEPRAZOLE
  63. OMEPRAZOLE [Suspect]
     Active Substance: OMEPRAZOLE
  64. OMEPRAZOLE [Suspect]
     Active Substance: OMEPRAZOLE
     Dates: start: 20200917
  65. OMEPRAZOLE [Suspect]
     Active Substance: OMEPRAZOLE
  66. OMEPRAZOLE [Suspect]
     Active Substance: OMEPRAZOLE
  67. OMEPRAZOLE [Suspect]
     Active Substance: OMEPRAZOLE
  68. OMEPRAZOLE [Suspect]
     Active Substance: OMEPRAZOLE
  69. OMEPRAZOLE [Suspect]
     Active Substance: OMEPRAZOLE
     Dosage: 480 MILLIGRAM DAILY; 20 MG, 2X/DAY
  70. OMEPRAZOLE [Suspect]
     Active Substance: OMEPRAZOLE
     Dosage: 480 MILLIGRAM DAILY; 20 MG, 2X/DAY
  71. OMEPRAZOLE [Suspect]
     Active Substance: OMEPRAZOLE
  72. OMEPRAZOLE [Suspect]
     Active Substance: OMEPRAZOLE
     Dates: start: 20100917
  73. OMEPRAZOLE [Suspect]
     Active Substance: OMEPRAZOLE
     Dosage: 20 MG EVERY 1 HOUR
  74. IRBESARTAN [Suspect]
     Active Substance: IRBESARTAN
     Indication: Abdominal discomfort
     Dates: start: 20100917
  75. IRBESARTAN [Suspect]
     Active Substance: IRBESARTAN
     Indication: Depression
     Dates: start: 20100917
  76. IRBESARTAN [Suspect]
     Active Substance: IRBESARTAN
     Indication: Rheumatoid arthritis
     Dates: start: 20100912
  77. IRBESARTAN [Suspect]
     Active Substance: IRBESARTAN
  78. IRBESARTAN [Suspect]
     Active Substance: IRBESARTAN
     Dates: start: 20100912
  79. IRBESARTAN [Suspect]
     Active Substance: IRBESARTAN
     Dates: start: 20100917
  80. IRBESARTAN [Suspect]
     Active Substance: IRBESARTAN
     Dates: start: 20100917
  81. IRBESARTAN [Suspect]
     Active Substance: IRBESARTAN
     Dates: start: 20100917
  82. IRBESARTAN [Suspect]
     Active Substance: IRBESARTAN
  83. IRBESARTAN [Suspect]
     Active Substance: IRBESARTAN
  84. IRBESARTAN [Suspect]
     Active Substance: IRBESARTAN
     Dates: start: 20100917
  85. IRBESARTAN [Suspect]
     Active Substance: IRBESARTAN
     Dates: start: 20100912
  86. IRBESARTAN [Suspect]
     Active Substance: IRBESARTAN
     Dates: start: 20100917
  87. IRBESARTAN [Suspect]
     Active Substance: IRBESARTAN
     Dates: start: 20100912
  88. IRBESARTAN [Suspect]
     Active Substance: IRBESARTAN
     Dosage: UNK, QD (150 MG, QD) 150 MG, QD (150 MG, QD (DAILY))
     Dates: start: 20100919
  89. IRBESARTAN [Suspect]
     Active Substance: IRBESARTAN
     Dosage: UNK, QD (150 MG, QD) 150 MG, QD (150 MG, QD (DAILY))
     Dates: start: 20100919
  90. PHYLLOCONTIN [Suspect]
     Active Substance: AMINOPHYLLINE
     Indication: Product used for unknown indication
     Dates: start: 20100917
  91. PHYLLOCONTIN [Suspect]
     Active Substance: AMINOPHYLLINE
     Dates: start: 20100917
  92. PHYLLOCONTIN [Suspect]
     Active Substance: AMINOPHYLLINE
     Dates: start: 20200917
  93. PHYLLOCONTIN [Suspect]
     Active Substance: AMINOPHYLLINE
  94. PHYLLOCONTIN [Suspect]
     Active Substance: AMINOPHYLLINE
  95. PHYLLOCONTIN [Suspect]
     Active Substance: AMINOPHYLLINE
  96. PHYLLOCONTIN [Suspect]
     Active Substance: AMINOPHYLLINE
     Dates: start: 20200917
  97. CARBOCYSTEINE [Suspect]
     Active Substance: CARBOCYSTEINE
     Indication: Rheumatoid arthritis
     Dates: start: 20100917
  98. CARBOCYSTEINE [Suspect]
     Active Substance: CARBOCYSTEINE
     Indication: Abdominal discomfort
     Dates: start: 20200917
  99. CARBOCYSTEINE [Suspect]
     Active Substance: CARBOCYSTEINE
  100. CARBOCYSTEINE [Suspect]
     Active Substance: CARBOCYSTEINE
  101. CARBOCYSTEINE [Suspect]
     Active Substance: CARBOCYSTEINE
     Dates: start: 20100917
  102. CARBOCYSTEINE [Suspect]
     Active Substance: CARBOCYSTEINE
     Dates: start: 20200917
  103. CARBOCYSTEINE [Suspect]
     Active Substance: CARBOCYSTEINE
     Dates: start: 20200917
  104. CARBOCYSTEINE [Suspect]
     Active Substance: CARBOCYSTEINE
     Dates: start: 20210917
  105. CARBOCYSTEINE [Suspect]
     Active Substance: CARBOCYSTEINE
     Dates: start: 20120917
  106. CARBOCYSTEINE [Suspect]
     Active Substance: CARBOCYSTEINE
  107. CARBOCYSTEINE [Suspect]
     Active Substance: CARBOCYSTEINE
  108. CARBOCYSTEINE [Suspect]
     Active Substance: CARBOCYSTEINE
  109. CARBOCYSTEINE [Suspect]
     Active Substance: CARBOCYSTEINE
  110. CARBOCYSTEINE [Suspect]
     Active Substance: CARBOCYSTEINE
     Dates: start: 20120917
  111. CARBOCYSTEINE [Suspect]
     Active Substance: CARBOCYSTEINE
     Dates: start: 20210917
  112. CARBAMAZEPINE [Suspect]
     Active Substance: CARBAMAZEPINE
     Indication: Depression
  113. CARBAMAZEPINE [Suspect]
     Active Substance: CARBAMAZEPINE
  114. CARBAMAZEPINE [Suspect]
     Active Substance: CARBAMAZEPINE
  115. CARBAMAZEPINE [Suspect]
     Active Substance: CARBAMAZEPINE
     Dates: start: 20200917
  116. CARBAMAZEPINE [Suspect]
     Active Substance: CARBAMAZEPINE
  117. CARBAMAZEPINE [Suspect]
     Active Substance: CARBAMAZEPINE
     Dates: start: 20210917
  118. CARBAMAZEPINE [Suspect]
     Active Substance: CARBAMAZEPINE
     Dates: start: 20100917
  119. DIPHENYLGUANIDINE [Suspect]
     Active Substance: DIPHENYLGUANIDINE
     Indication: Abdominal discomfort
  120. DIPHENYLGUANIDINE [Suspect]
     Active Substance: DIPHENYLGUANIDINE
     Indication: Depression
  121. DIPHENYLGUANIDINE [Suspect]
     Active Substance: DIPHENYLGUANIDINE
  122. DIPHENYLGUANIDINE [Suspect]
     Active Substance: DIPHENYLGUANIDINE
  123. DIPHENYLGUANIDINE [Suspect]
     Active Substance: DIPHENYLGUANIDINE
  124. DIPHENYLGUANIDINE [Suspect]
     Active Substance: DIPHENYLGUANIDINE
  125. DIPHENYLGUANIDINE [Suspect]
     Active Substance: DIPHENYLGUANIDINE
  126. ZINC OXIDE [Suspect]
     Active Substance: ZINC OXIDE
     Indication: Depression
  127. ZINC OXIDE [Suspect]
     Active Substance: ZINC OXIDE
     Indication: Abdominal discomfort
  128. ZINC OXIDE [Suspect]
     Active Substance: ZINC OXIDE
  129. ZINC OXIDE [Suspect]
     Active Substance: ZINC OXIDE
  130. ZINC OXIDE [Suspect]
     Active Substance: ZINC OXIDE
  131. ZINC OXIDE [Suspect]
     Active Substance: ZINC OXIDE
  132. ZINC OXIDE [Suspect]
     Active Substance: ZINC OXIDE
  133. ZINC OXIDE [Suspect]
     Active Substance: ZINC OXIDE
  134. ZINC OXIDE [Suspect]
     Active Substance: ZINC OXIDE
  135. VENLAFAXINE HYDROCHLORIDE [Suspect]
     Active Substance: VENLAFAXINE HYDROCHLORIDE
     Indication: Depression
  136. VENLAFAXINE HYDROCHLORIDE [Suspect]
     Active Substance: VENLAFAXINE HYDROCHLORIDE
     Indication: Rheumatoid arthritis
  137. VENLAFAXINE HYDROCHLORIDE [Suspect]
     Active Substance: VENLAFAXINE HYDROCHLORIDE
  138. VENLAFAXINE HYDROCHLORIDE [Suspect]
     Active Substance: VENLAFAXINE HYDROCHLORIDE
  139. CARBAMAZEPINE [Suspect]
     Active Substance: CARBAMAZEPINE
     Indication: Depression
  140. CARBAMAZEPINE [Suspect]
     Active Substance: CARBAMAZEPINE
     Indication: Rheumatoid arthritis
  141. CARBAMAZEPINE [Suspect]
     Active Substance: CARBAMAZEPINE
  142. CARBAMAZEPINE [Suspect]
     Active Substance: CARBAMAZEPINE
     Dates: start: 20100917
  143. CARBAMAZEPINE [Suspect]
     Active Substance: CARBAMAZEPINE
     Dates: start: 20200917
  144. CARBAMAZEPINE [Suspect]
     Active Substance: CARBAMAZEPINE
     Dates: start: 20210917
  145. CARBAMAZEPINE [Suspect]
     Active Substance: CARBAMAZEPINE
  146. CARBAMAZEPINE [Suspect]
     Active Substance: CARBAMAZEPINE
  147. CARBAMAZEPINE [Suspect]
     Active Substance: CARBAMAZEPINE
     Dates: start: 20100917
  148. CARBAMAZEPINE [Suspect]
     Active Substance: CARBAMAZEPINE
     Dates: start: 20210917
  149. CARBAMAZEPINE [Suspect]
     Active Substance: CARBAMAZEPINE
     Dates: start: 20100917
  150. CARBAMAZEPINE [Suspect]
     Active Substance: CARBAMAZEPINE
  151. CARBAMAZEPINE [Suspect]
     Active Substance: CARBAMAZEPINE
     Dates: start: 20200917
  152. GUANIDINE [Suspect]
     Active Substance: GUANIDINE
     Indication: Abdominal discomfort
     Dosage: 1,3-DIPHENYLGUANIDINE
  153. GUANIDINE [Suspect]
     Active Substance: GUANIDINE
     Indication: Depression
     Dosage: 1,3-DIPHENYLGUANIDINE
  154. GUANIDINE [Suspect]
     Active Substance: GUANIDINE
     Dosage: 1,3-DIPHENYLGUANIDINE
  155. GUANIDINE [Suspect]
     Active Substance: GUANIDINE
  156. GUANIDINE [Suspect]
     Active Substance: GUANIDINE
     Dosage: 1,3-DIPHENYLGUANIDINE
  157. GUANIDINE [Suspect]
     Active Substance: GUANIDINE
  158. GUANIDINE [Suspect]
     Active Substance: GUANIDINE
  159. GUANIDINE [Suspect]
     Active Substance: GUANIDINE
  160. GUANIDINE [Suspect]
     Active Substance: GUANIDINE
  161. CIPROFLOXACIN HYDROCHLORIDE [Suspect]
     Active Substance: CIPROFLOXACIN HYDROCHLORIDE
     Indication: Depression
     Dates: start: 20100917
  162. CIPROFLOXACIN HYDROCHLORIDE [Suspect]
     Active Substance: CIPROFLOXACIN HYDROCHLORIDE
     Indication: Rheumatoid arthritis
     Dates: start: 20100917
  163. CIPROFLOXACIN HYDROCHLORIDE [Suspect]
     Active Substance: CIPROFLOXACIN HYDROCHLORIDE
     Indication: Abdominal discomfort
     Dates: start: 20200917
  164. CIPROFLOXACIN HYDROCHLORIDE [Suspect]
     Active Substance: CIPROFLOXACIN HYDROCHLORIDE
  165. CIPROFLOXACIN HYDROCHLORIDE [Suspect]
     Active Substance: CIPROFLOXACIN HYDROCHLORIDE
  166. CIPROFLOXACIN HYDROCHLORIDE [Suspect]
     Active Substance: CIPROFLOXACIN HYDROCHLORIDE
  167. CIPROFLOXACIN HYDROCHLORIDE [Suspect]
     Active Substance: CIPROFLOXACIN HYDROCHLORIDE
  168. CIPROFLOXACIN HYDROCHLORIDE [Suspect]
     Active Substance: CIPROFLOXACIN HYDROCHLORIDE
  169. CIPROFLOXACIN HYDROCHLORIDE [Suspect]
     Active Substance: CIPROFLOXACIN HYDROCHLORIDE
  170. CIPROFLOXACIN HYDROCHLORIDE [Suspect]
     Active Substance: CIPROFLOXACIN HYDROCHLORIDE
     Dates: start: 20200917
  171. CIPROFLOXACIN HYDROCHLORIDE [Suspect]
     Active Substance: CIPROFLOXACIN HYDROCHLORIDE
     Dates: start: 20100917
  172. CIPROFLOXACIN HYDROCHLORIDE [Suspect]
     Active Substance: CIPROFLOXACIN HYDROCHLORIDE
     Dates: start: 20100917
  173. CIPROFLOXACIN HYDROCHLORIDE [Suspect]
     Active Substance: CIPROFLOXACIN HYDROCHLORIDE
     Dates: start: 20200917
  174. CIPROFLOXACIN HYDROCHLORIDE [Suspect]
     Active Substance: CIPROFLOXACIN HYDROCHLORIDE
     Dates: start: 20200917
  175. CIPROFLOXACIN HYDROCHLORIDE [Suspect]
     Active Substance: CIPROFLOXACIN HYDROCHLORIDE
     Dates: start: 20200917
  176. CIPROFLOXACIN HYDROCHLORIDE [Suspect]
     Active Substance: CIPROFLOXACIN HYDROCHLORIDE
     Dates: start: 20200917
  177. CIPROFLOXACIN HYDROCHLORIDE [Suspect]
     Active Substance: CIPROFLOXACIN HYDROCHLORIDE
     Dates: start: 20100917
  178. ZINC [Suspect]
     Active Substance: ZINC
     Indication: Abdominal discomfort
     Dosage: DIETHYLDITHIOCARBAMATE
  179. ZINC [Suspect]
     Active Substance: ZINC
     Indication: Depression
     Dosage: DIETHYLDITHIOCARBAMATE
  180. ZINC [Suspect]
     Active Substance: ZINC
  181. ZINC [Suspect]
     Active Substance: ZINC
  182. ZINC [Suspect]
     Active Substance: ZINC
  183. ZINC [Suspect]
     Active Substance: ZINC
     Dosage: DIETHYLDITHIOCARBAMATE
  184. ZINC [Suspect]
     Active Substance: ZINC
  185. ZINC [Suspect]
     Active Substance: ZINC
  186. ZINC [Suspect]
     Active Substance: ZINC
  187. SULFAGUANIDINE [Suspect]
     Active Substance: SULFAGUANIDINE
     Indication: Abdominal discomfort
  188. SULFAGUANIDINE [Suspect]
     Active Substance: SULFAGUANIDINE
  189. SULFAGUANIDINE [Suspect]
     Active Substance: SULFAGUANIDINE
  190. SULFAGUANIDINE [Suspect]
     Active Substance: SULFAGUANIDINE
  191. SULFAGUANIDINE [Suspect]
     Active Substance: SULFAGUANIDINE
  192. SULFAGUANIDINE [Suspect]
     Active Substance: SULFAGUANIDINE
  193. AMINOPHYLLINE [Suspect]
     Active Substance: AMINOPHYLLINE
     Indication: Depression
     Dates: start: 20100917
  194. AMINOPHYLLINE [Suspect]
     Active Substance: AMINOPHYLLINE
     Dates: start: 20200917
  195. AMINOPHYLLINE [Suspect]
     Active Substance: AMINOPHYLLINE
     Dates: start: 20100917
  196. AMINOPHYLLINE [Suspect]
     Active Substance: AMINOPHYLLINE
  197. AMINOPHYLLINE [Suspect]
     Active Substance: AMINOPHYLLINE
  198. AMINOPHYLLINE [Suspect]
     Active Substance: AMINOPHYLLINE
  199. AMINOPHYLLINE [Suspect]
     Active Substance: AMINOPHYLLINE
  200. AMINOPHYLLINE [Suspect]
     Active Substance: AMINOPHYLLINE
     Dates: start: 20200917
  201. CHARCOAL ACTIVATED [Suspect]
     Active Substance: ACTIVATED CHARCOAL
     Indication: Product used for unknown indication
  202. CHARCOAL ACTIVATED [Suspect]
     Active Substance: ACTIVATED CHARCOAL
  203. CHARCOAL ACTIVATED [Suspect]
     Active Substance: ACTIVATED CHARCOAL
  204. CHARCOAL ACTIVATED [Suspect]
     Active Substance: ACTIVATED CHARCOAL
  205. CHARCOAL ACTIVATED [Suspect]
     Active Substance: ACTIVATED CHARCOAL
  206. CHARCOAL ACTIVATED [Suspect]
     Active Substance: ACTIVATED CHARCOAL
  207. CHARCOAL ACTIVATED [Suspect]
     Active Substance: ACTIVATED CHARCOAL
  208. CHARCOAL ACTIVATED [Suspect]
     Active Substance: ACTIVATED CHARCOAL
  209. CHARCOAL ACTIVATED [Suspect]
     Active Substance: ACTIVATED CHARCOAL
  210. CHARCOAL ACTIVATED [Suspect]
     Active Substance: ACTIVATED CHARCOAL
  211. CHARCOAL ACTIVATED [Suspect]
     Active Substance: ACTIVATED CHARCOAL
  212. THEOPHYLLINE [Suspect]
     Active Substance: THEOPHYLLINE
     Indication: Depression
  213. THEOPHYLLINE [Suspect]
     Active Substance: THEOPHYLLINE
     Indication: Abdominal discomfort
  214. THEOPHYLLINE [Suspect]
     Active Substance: THEOPHYLLINE
  215. AMOXICILLIN [Suspect]
     Active Substance: AMOXICILLIN
     Indication: Abdominal discomfort
     Dosage: 125 MG/ 5 ML
     Dates: start: 20210904
  216. AMOXICILLIN [Suspect]
     Active Substance: AMOXICILLIN
     Dosage: 125 MG /5 ML
  217. AMOXICILLIN [Suspect]
     Active Substance: AMOXICILLIN
     Dates: start: 20210904
  218. AMOXICILLIN [Suspect]
     Active Substance: AMOXICILLIN
     Dosage: 125 MG/ 5 ML
     Dates: start: 20210904
  219. AMOXICILLIN [Suspect]
     Active Substance: AMOXICILLIN
     Dosage: 125 MG/ 5 ML
     Dates: start: 20210904
  220. AMOXICILLIN [Suspect]
     Active Substance: AMOXICILLIN
     Dosage: 1 DOSAGE FORM, 125 MG/ 5 ML
     Dates: start: 20210904
  221. AMOXICILLIN [Suspect]
     Active Substance: AMOXICILLIN
     Dosage: 1 DOSAGE FORM, 125 MG/ 5 ML
     Dates: start: 20210904
  222. AMOXICILLIN [Suspect]
     Active Substance: AMOXICILLIN
     Dosage: 1 DOSAGE FORM, 125 MG/ 5 ML
  223. PROBIOTICS NOS [Suspect]
     Active Substance: PROBIOTICS NOS
     Indication: Abdominal discomfort
  224. PROBIOTICS NOS [Suspect]
     Active Substance: PROBIOTICS NOS
     Indication: Depression
  225. PROBIOTICS NOS [Suspect]
     Active Substance: PROBIOTICS NOS
     Indication: Pituitary tumour
  226. PROBIOTICS NOS [Suspect]
     Active Substance: PROBIOTICS NOS
     Indication: Rheumatoid arthritis
  227. VENLAFAXINE [Suspect]
     Active Substance: VENLAFAXINE HYDROCHLORIDE
     Indication: Rheumatoid arthritis
  228. VENLAFAXINE [Suspect]
     Active Substance: VENLAFAXINE HYDROCHLORIDE
     Indication: Abdominal discomfort
  229. VENLAFAXINE [Suspect]
     Active Substance: VENLAFAXINE HYDROCHLORIDE
  230. VENLAFAXINE [Suspect]
     Active Substance: VENLAFAXINE HYDROCHLORIDE
  231. VENLAFAXINE [Suspect]
     Active Substance: VENLAFAXINE HYDROCHLORIDE
  232. VENLAFAXINE [Suspect]
     Active Substance: VENLAFAXINE HYDROCHLORIDE
  233. VENLAFAXINE [Suspect]
     Active Substance: VENLAFAXINE HYDROCHLORIDE
  234. VENLAFAXINE [Suspect]
     Active Substance: VENLAFAXINE HYDROCHLORIDE
  235. BIFIDOBACTERIUM LONGUM [Suspect]
     Active Substance: BIFIDOBACTERIUM LONGUM
     Indication: Abdominal discomfort
  236. BIFIDOBACTERIUM LONGUM [Suspect]
     Active Substance: BIFIDOBACTERIUM LONGUM
     Indication: Depression
  237. BIFIDOBACTERIUM LONGUM [Suspect]
     Active Substance: BIFIDOBACTERIUM LONGUM
  238. BIFIDOBACTERIUM LONGUM [Suspect]
     Active Substance: BIFIDOBACTERIUM LONGUM
  239. BIFIDOBACTERIUM LONGUM [Suspect]
     Active Substance: BIFIDOBACTERIUM LONGUM
  240. BIFIDOBACTERIUM LONGUM [Suspect]
     Active Substance: BIFIDOBACTERIUM LONGUM
  241. SIMETHICONE (DIMETHICONE) [Suspect]
     Active Substance: DIMETHICONE
     Indication: Product used for unknown indication
  242. CIPROFLOXACIN HYDROCHLORIDE [Suspect]
     Active Substance: CIPROFLOXACIN HYDROCHLORIDE
     Indication: Rheumatoid arthritis
  243. CIPROFLOXACIN HYDROCHLORIDE [Suspect]
     Active Substance: CIPROFLOXACIN HYDROCHLORIDE
     Indication: Abdominal discomfort
     Dosage: BATCH AND LOT TESTED AND FOUND WITHIN SPECIFICATIONS
     Dates: start: 20100917
  244. CIPROFLOXACIN HYDROCHLORIDE [Suspect]
     Active Substance: CIPROFLOXACIN HYDROCHLORIDE
     Indication: Depression
  245. PHYLLOCONTIN [Suspect]
     Active Substance: AMINOPHYLLINE
     Indication: Product used for unknown indication
  246. PHYLLOCONTIN [Suspect]
     Active Substance: AMINOPHYLLINE
     Dates: start: 20100917
  247. PHYLLOCONTIN [Suspect]
     Active Substance: AMINOPHYLLINE
     Dates: start: 20100917
  248. CARBAMAZEPINE [Suspect]
     Active Substance: CARBAMAZEPINE
     Indication: Depression
     Dates: start: 20200917
  249. ACTIVATED CHARCOAL [Concomitant]
     Active Substance: ACTIVATED CHARCOAL
  250. CABERGOLINE [Concomitant]
     Active Substance: CABERGOLINE
     Indication: Pituitary tumour
  251. CABERGOLINE [Concomitant]
     Active Substance: CABERGOLINE
     Indication: Empty sella syndrome
  252. CABERGOLINE [Concomitant]
     Active Substance: CABERGOLINE
     Indication: Rheumatoid arthritis
  253. CABERGOLINE [Concomitant]
     Active Substance: CABERGOLINE
  254. CABERGOLINE [Concomitant]
     Active Substance: CABERGOLINE
  255. CABERGOLINE [Concomitant]
     Active Substance: CABERGOLINE
  256. CABERGOLINE [Concomitant]
     Active Substance: CABERGOLINE
  257. LEVOTHYROXINE [Concomitant]
     Active Substance: LEVOTHYROXINE
     Indication: Abdominal discomfort
  258. LEVOTHYROXINE [Concomitant]
     Active Substance: LEVOTHYROXINE
     Indication: Pituitary tumour
  259. LEVOTHYROXINE [Concomitant]
     Active Substance: LEVOTHYROXINE
     Indication: Empty sella syndrome
  260. LEVOTHYROXINE [Concomitant]
     Active Substance: LEVOTHYROXINE
  261. LEVOTHYROXINE [Concomitant]
     Active Substance: LEVOTHYROXINE
  262. BENDROFLUMETHIAZIDE [Concomitant]
     Active Substance: BENDROFLUMETHIAZIDE
     Indication: Pituitary tumour
  263. BENDROFLUMETHIAZIDE [Concomitant]
     Active Substance: BENDROFLUMETHIAZIDE
     Indication: Depression
  264. BENDROFLUMETHIAZIDE [Concomitant]
     Active Substance: BENDROFLUMETHIAZIDE
  265. BENDROFLUMETHIAZIDE [Concomitant]
     Active Substance: BENDROFLUMETHIAZIDE
  266. BENDROFLUMETHIAZIDE [Concomitant]
     Active Substance: BENDROFLUMETHIAZIDE
  267. CETIRIZINE [Concomitant]
     Active Substance: CETIRIZINE HYDROCHLORIDE
     Indication: Abdominal discomfort
  268. CETIRIZINE [Concomitant]
     Active Substance: CETIRIZINE HYDROCHLORIDE
     Indication: Rheumatoid arthritis
  269. CETIRIZINE [Concomitant]
     Active Substance: CETIRIZINE HYDROCHLORIDE
  270. CETIRIZINE [Concomitant]
     Active Substance: CETIRIZINE HYDROCHLORIDE
  271. EZETIMIBE [Concomitant]
     Active Substance: EZETIMIBE
  272. EZETIMIBE [Concomitant]
     Active Substance: EZETIMIBE
  273. EZETIMIBE [Concomitant]
     Active Substance: EZETIMIBE
     Dosage: MYCLIC PEN
     Dates: start: 20210917
  274. EZETIMIBE [Concomitant]
     Active Substance: EZETIMIBE
     Dosage: MYCLIC PEN
     Dates: start: 20210917
  275. EZETIMIBE [Concomitant]
     Active Substance: EZETIMIBE
     Dosage: MYCLIC PEN
     Dates: start: 20100917
  276. EZETIMIBE [Concomitant]
     Active Substance: EZETIMIBE
  277. EZETIMIBE [Concomitant]
     Active Substance: EZETIMIBE
  278. ORUVAIL [Concomitant]
     Active Substance: KETOPROFEN
     Indication: Empty sella syndrome
  279. ORUVAIL [Concomitant]
     Active Substance: KETOPROFEN
  280. ORUVAIL [Concomitant]
     Active Substance: KETOPROFEN
  281. ORUVAIL [Concomitant]
     Active Substance: KETOPROFEN
  282. ORUVAIL [Concomitant]
     Active Substance: KETOPROFEN
  283. ORUVAIL [Concomitant]
     Active Substance: KETOPROFEN
  284. FOLIC ACID [Concomitant]
     Active Substance: FOLIC ACID
     Indication: Rheumatoid arthritis
  285. FOLIC ACID [Concomitant]
     Active Substance: FOLIC ACID
  286. FOLIC ACID [Concomitant]
     Active Substance: FOLIC ACID
  287. FOLIC ACID [Concomitant]
     Active Substance: FOLIC ACID
  288. FOLIC ACID [Concomitant]
     Active Substance: FOLIC ACID
  289. CHARCOAL ACTIVATED [Concomitant]
     Active Substance: ACTIVATED CHARCOAL
  290. CHARCOAL ACTIVATED [Concomitant]
     Active Substance: ACTIVATED CHARCOAL
     Dosage: QD
  291. CHARCOAL ACTIVATED [Concomitant]
     Active Substance: ACTIVATED CHARCOAL
     Dosage: QD
  292. CHARCOAL ACTIVATED [Concomitant]
     Active Substance: ACTIVATED CHARCOAL
     Dosage: QD
  293. CHARCOAL ACTIVATED [Concomitant]
     Active Substance: ACTIVATED CHARCOAL
     Dosage: QD
  294. CHARCOAL ACTIVATED [Concomitant]
     Active Substance: ACTIVATED CHARCOAL
     Dosage: QD
  295. DOXYCYCLINE [Concomitant]
     Active Substance: DOXYCYCLINE
     Indication: Pulmonary pain
  296. THEOPHYLLINE [Concomitant]
     Active Substance: THEOPHYLLINE
     Indication: Depression
  297. THEOPHYLLINE [Concomitant]
     Active Substance: THEOPHYLLINE
     Indication: Abdominal discomfort
  298. THEOPHYLLINE [Concomitant]
     Active Substance: THEOPHYLLINE
  299. KETOPROFEN [Concomitant]
     Active Substance: KETOPROFEN
  300. DIETARY SUPPLEMENT [Concomitant]
     Active Substance: DIETARY SUPPLEMENT
  301. DIETARY SUPPLEMENT [Concomitant]
     Active Substance: DIETARY SUPPLEMENT
  302. DIETARY SUPPLEMENT [Concomitant]
     Active Substance: DIETARY SUPPLEMENT
  303. DIETARY SUPPLEMENT [Concomitant]
     Active Substance: DIETARY SUPPLEMENT

REACTIONS (11)
  - Medication error [Unknown]
  - Drug abuse [Unknown]
  - Intentional product misuse [Unknown]
  - Lower respiratory tract infection [Not Recovered/Not Resolved]
  - Pulmonary pain [Unknown]
  - Arthropathy [Unknown]
  - Rash [Not Recovered/Not Resolved]
  - Abdominal discomfort [Unknown]
  - Amyloid arthropathy [Unknown]
  - Obesity [Unknown]
  - Off label use [Unknown]

NARRATIVE: CASE EVENT DATE: 20100917
